FAERS Safety Report 18054307 (Version 1)
Quarter: 2020Q3

REPORT INFORMATION
  Report Type: Report from Study
  Country: FR (occurrence: FR)
  Receive Date: 20200722
  Receipt Date: 20200722
  Transmission Date: 20201103
  Serious: Yes (Hospitalization, Other)
  Sender: FDA-Public Use
  Company Number: FR-MYLANLABS-2020M1064817

PATIENT
  Age: 70 Year
  Sex: Male
  Weight: 79 kg

DRUGS (11)
  1. DILTIAZEM. [Suspect]
     Active Substance: DILTIAZEM
     Indication: PRODUCT USED FOR UNKNOWN INDICATION
     Dosage: 60 MILLIGRAM
     Route: 065
  2. KYPROLIS [Suspect]
     Active Substance: CARFILZOMIB
     Indication: PLASMA CELL MYELOMA
     Dosage: 37.4 MILLIGRAM
     Route: 042
     Dates: start: 20190909
  3. DEXAMETHASONE. [Concomitant]
     Active Substance: DEXAMETHASONE
     Indication: PLASMA CELL MYELOMA
     Dosage: 20 MILLIGRAM
     Dates: start: 20190909
  4. VERSATIS [Concomitant]
     Active Substance: LIDOCAINE
     Dosage: 1 UNK
     Dates: start: 2018
  5. NEURONTIN [Concomitant]
     Active Substance: GABAPENTIN
     Dosage: 300 MICROGRAM
     Dates: start: 2014
  6. BACTRIM [Concomitant]
     Active Substance: SULFAMETHOXAZOLE\TRIMETHOPRIM
     Dosage: 1 UNK
     Dates: start: 20161212
  7. PLAVIX [Concomitant]
     Active Substance: CLOPIDOGREL BISULFATE
     Dosage: 75 MILLIGRAM
  8. PLAVIX [Concomitant]
     Active Substance: CLOPIDOGREL BISULFATE
     Dosage: 75 MILLIGRAM
  9. NIVESTIM [Concomitant]
     Active Substance: FILGRASTIM
     Dosage: 12 UNK
     Dates: start: 20190124
  10. RETACRIT                           /00928305/ [Concomitant]
     Active Substance: ERYTHROPOIETIN
     Dosage: 30000 INTERNATIONAL UNIT
     Dates: start: 2016
  11. ZELITREX [Concomitant]
     Active Substance: VALACYCLOVIR HYDROCHLORIDE
     Dosage: 500 MILLIGRAM
     Dates: start: 20161212

REACTIONS (2)
  - Bradycardia [Recovered/Resolved]
  - Thrombocytopenia [Not Recovered/Not Resolved]

NARRATIVE: CASE EVENT DATE: 20190910
